FAERS Safety Report 13402063 (Version 2)
Quarter: 2017Q2

REPORT INFORMATION
  Report Type: Spontaneous
  Country: CA (occurrence: CA)
  Receive Date: 20170404
  Receipt Date: 20170407
  Transmission Date: 20170830
  Serious: Yes (Other)
  Sender: FDA-Public Use
  Company Number: CA-GE HEALTHCARE LIFE SCIENCES-2017CSU000666

PATIENT

DRUGS (3)
  1. LIPITOR [Concomitant]
     Active Substance: ATORVASTATIN CALCIUM
     Indication: PRODUCT USED FOR UNKNOWN INDICATION
     Dosage: 20 MG, UNK
  2. AVAPRO [Concomitant]
     Active Substance: IRBESARTAN
     Indication: PRODUCT USED FOR UNKNOWN INDICATION
     Dosage: 150 MG, UNK
  3. VISIPAQUE [Suspect]
     Active Substance: IODIXANOL
     Indication: CENTRAL NERVOUS SYSTEM LESION
     Dosage: 80 ML, SINGLE
     Route: 042
     Dates: start: 20170329, end: 20170329

REACTIONS (4)
  - Throat irritation [Recovered/Resolved]
  - Hypoaesthesia [Recovered/Resolved]
  - Bronchospasm [Recovered/Resolved]
  - Face oedema [Recovered/Resolved]

NARRATIVE: CASE EVENT DATE: 20170329
